FAERS Safety Report 19768360 (Version 2)
Quarter: 2021Q4

REPORT INFORMATION
  Report Type: Spontaneous
  Country: US (occurrence: US)
  Receive Date: 20210830
  Receipt Date: 20211001
  Transmission Date: 20220304
  Serious: No
  Sender: FDA-Public Use
  Company Number: US-TEIKOKU PHARMA USA-TPU2021-00814

PATIENT
  Age: 83 Year
  Sex: Female

DRUGS (1)
  1. LIDOCAINE PATCH [Suspect]
     Active Substance: LIDOCAINE
     Indication: Pain in extremity
     Route: 061

REACTIONS (6)
  - Pain [Recovered/Resolved]
  - Gait inability [Recovered/Resolved]
  - Application site irritation [Recovered/Resolved]
  - Application site haemorrhage [Recovered/Resolved]
  - Application site swelling [Unknown]
  - Insurance issue [Unknown]
